FAERS Safety Report 7535748-3 (Version None)
Quarter: 2011Q2

REPORT INFORMATION
  Report Type: 
  Country: None (occurrence: None)
  Receive Date: 20110609
  Receipt Date: 20110415
  Transmission Date: 20111010
  Serious: No
  Sender: FDA-Public Use
  Company Number: US-KINGPHARMUSA00001-K201100461

PATIENT
  Age: 63 Year
  Sex: Female
  Weight: 90.703 kg

DRUGS (2)
  1. EMBEDA [Suspect]
     Indication: BACK PAIN
     Dosage: 100 MG, BID
     Route: 048
     Dates: start: 20110309, end: 20110317
  2. EMBEDA [Suspect]
     Indication: ARTHRALGIA

REACTIONS (5)
  - SKIN HAEMORRHAGE [None]
  - URTICARIA [None]
  - HYPERSENSITIVITY [None]
  - PRURITUS [None]
  - RASH [None]
